FAERS Safety Report 17413553 (Version 1)
Quarter: 2020Q1

REPORT INFORMATION
  Report Type: Spontaneous
  Country: US (occurrence: US)
  Receive Date: 20200213
  Receipt Date: 20200213
  Transmission Date: 20200409
  Serious: Yes (Hospitalization)
  Sender: FDA-Public Use
  Company Number: None

PATIENT
  Age: 38 Year
  Sex: Female

DRUGS (16)
  1. LEUCOVORIN. [Concomitant]
     Active Substance: LEUCOVORIN
  2. HUMIRA [Suspect]
     Active Substance: ADALIMUMAB
     Indication: PSORIATIC ARTHROPATHY
     Dosage: ?          OTHER FREQUENCY:ONCE A WEEK;?
     Route: 058
     Dates: start: 20160218
  3. CLARITIN [Concomitant]
     Active Substance: LORATADINE
  4. IRBESARTAN. [Concomitant]
     Active Substance: IRBESARTAN
  5. FOLIC ACID. [Concomitant]
     Active Substance: FOLIC ACID
  6. VALSARTAN. [Concomitant]
     Active Substance: VALSARTAN
  7. ALLERGY STRG [Concomitant]
  8. HYDROXYZ [Concomitant]
     Active Substance: HYDROXYZINE HYDROCHLORIDE
  9. VITAMIN D [Concomitant]
     Active Substance: VITAMIN D NOS
  10. METHOTREXATE. [Concomitant]
     Active Substance: METHOTREXATE
  11. NASONEX [Concomitant]
     Active Substance: MOMETASONE FUROATE
  12. GLUCOSAMINE [Concomitant]
     Active Substance: GLUCOSAMINE
  13. HYDROCHLOROT [Concomitant]
     Active Substance: HYDROCHLOROTHIAZIDE
  14. LOSARTAN. [Concomitant]
     Active Substance: LOSARTAN
  15. MOMETASONE [Concomitant]
     Active Substance: MOMETASONE
  16. MULTIVITAMIN [Concomitant]
     Active Substance: VITAMINS

REACTIONS (1)
  - Therapy cessation [None]
